FAERS Safety Report 9711158 (Version 2)
Quarter: 2013Q4

REPORT INFORMATION
  Report Type: Spontaneous
  Country: US (occurrence: US)
  Receive Date: 20131126
  Receipt Date: 20131126
  Transmission Date: 20140711
  Serious: No
  Sender: FDA-Public Use
  Company Number: US-BRISTOL-MYERS SQUIBB COMPANY-19178318

PATIENT
  Age: 61 Year
  Sex: Male
  Weight: 91.15 kg

DRUGS (3)
  1. BYETTA [Suspect]
     Indication: TYPE 2 DIABETES MELLITUS
     Dosage: FREQUENCY-AT 11AM AND 6PM
     Route: 058
     Dates: start: 2011
  2. METFORMIN [Concomitant]
  3. CHANTIX [Concomitant]
     Dosage: 1DF= TABLET

REACTIONS (2)
  - Nephrolithiasis [Recovered/Resolved]
  - Nausea [Recovered/Resolved]
